FAERS Safety Report 20066133 (Version 3)
Quarter: 2022Q1

REPORT INFORMATION
  Report Type: Report from Study
  Country: US (occurrence: US)
  Receive Date: 20211114
  Receipt Date: 20220202
  Transmission Date: 20220423
  Serious: Yes (Other)
  Sender: FDA-Public Use
  Company Number: US-ABBVIE-21K-163-4111301-00

PATIENT
  Sex: Female

DRUGS (6)
  1. RINVOQ [Suspect]
     Active Substance: UPADACITINIB
     Indication: Rheumatoid arthritis
     Route: 048
     Dates: start: 20200430
  2. RINVOQ [Suspect]
     Active Substance: UPADACITINIB
     Route: 048
  3. RINVOQ [Suspect]
     Active Substance: UPADACITINIB
     Route: 048
  4. MODERNA COVID-19 VACCINE [Suspect]
     Active Substance: ELASOMERAN
     Indication: COVID-19 immunisation
     Dosage: 1ST DOSE
     Route: 030
     Dates: start: 20210824, end: 20210824
  5. MODERNA COVID-19 VACCINE [Suspect]
     Active Substance: ELASOMERAN
     Dosage: 2ND DOSE
     Route: 030
  6. MODERNA COVID-19 VACCINE [Suspect]
     Active Substance: ELASOMERAN
     Dosage: BOOSTER DOSE
     Route: 030

REACTIONS (6)
  - Oral disorder [Unknown]
  - Post procedural infection [Unknown]
  - Malaise [Recovered/Resolved]
  - Erythema [Unknown]
  - Feeling hot [Unknown]
  - Rheumatoid arthritis [Recovering/Resolving]

NARRATIVE: CASE EVENT DATE: 20210101
